FAERS Safety Report 14109707 (Version 1)
Quarter: 2017Q4

REPORT INFORMATION
  Report Type: Spontaneous
  Country: US (occurrence: US)
  Receive Date: 20171020
  Receipt Date: 20171020
  Transmission Date: 20180321
  Serious: Yes (Other)
  Sender: FDA-Public Use
  Company Number: US-ELI_LILLY_AND_COMPANY-US201710005212

PATIENT
  Sex: Male

DRUGS (1)
  1. CYRAMZA [Suspect]
     Active Substance: RAMUCIRUMAB
     Indication: OESOPHAGEAL CARCINOMA
     Dosage: 722 MG, CYCLICAL (OVER 60 MINUTES ON DAYS 1 AND 15 EVERY 28 DAYS)
     Route: 042
     Dates: start: 20170526

REACTIONS (2)
  - Disease progression [Unknown]
  - Off label use [Unknown]
